FAERS Safety Report 24392085 (Version 1)
Quarter: 2024Q4

REPORT INFORMATION
  Report Type: Spontaneous
  Country: US (occurrence: None)
  Receive Date: 20241002
  Receipt Date: 20241002
  Transmission Date: 20250114
  Serious: No
  Sender: Public
  Company Number: None

PATIENT
  Sex: Female

DRUGS (12)
  1. VIGABATRIN [Suspect]
     Active Substance: VIGABATRIN
     Indication: Idiopathic partial epilepsy
     Dosage: FREQUENCY : TWICE A DAY;?
     Route: 048
  2. VIGABATRIN [Suspect]
     Active Substance: VIGABATRIN
     Indication: Idiopathic partial epilepsy
  3. CALCIUM\VITAMIN D [Concomitant]
     Active Substance: CALCIUM\VITAMIN D
  4. VITAMIN D [Concomitant]
     Active Substance: VITAMIN D NOS
  5. FOLIC ACID [Concomitant]
     Active Substance: FOLIC ACID
  6. FISH OIL [Concomitant]
     Active Substance: FISH OIL
  7. VIMPAT [Concomitant]
     Active Substance: LACOSAMIDE
  8. CLONAZEPAM [Concomitant]
     Active Substance: CLONAZEPAM
  9. VITAMINS [Concomitant]
     Active Substance: VITAMINS
  10. LEVOTHYROXINE SODIUM [Concomitant]
     Active Substance: LEVOTHYROXINE SODIUM
  11. XCOPRI [Concomitant]
     Active Substance: CENOBAMATE
  12. VALTOCO 15 MG DOSE [Concomitant]

REACTIONS (3)
  - Seizure [None]
  - Nasopharyngitis [None]
  - Therapeutic product effect decreased [None]
